FAERS Safety Report 8081993-0 (Version None)
Quarter: 2012Q1

REPORT INFORMATION
  Report Type: 
  Country: None (occurrence: None)
  Receive Date: 20120130
  Receipt Date: 20120124
  Transmission Date: 20120608
  Serious: No
  Sender: FDA-Public Use
  Company Number: US-ABBOTT-12P-163-0896819-00

PATIENT
  Age: 17 Year
  Weight: 103.51 kg

DRUGS (1)
  1. LUPRON DEPOT [Suspect]
     Indication: GENDER IDENTITY DISORDER
     Dates: start: 20111123

REACTIONS (4)
  - OFF LABEL USE [None]
  - INJECTION SITE PAIN [None]
  - GENDER IDENTITY DISORDER [None]
  - INJECTION SITE SWELLING [None]
